FAERS Safety Report 5959195-0 (Version None)
Quarter: 2008Q4

REPORT INFORMATION
  Report Type: 
  Country: None (occurrence: None)
  Receive Date: 20081120
  Receipt Date: 20080530
  Transmission Date: 20090506
  Serious: No
  Sender: FDA-Public Use
  Company Number: A0731558A

PATIENT
  Age: 18 Year
  Sex: Female

DRUGS (1)
  1. BUPROPION HYDROCHLORIDE [Suspect]
     Indication: ANXIETY
     Dosage: 50MG PER DAY
     Route: 048
     Dates: start: 20080429, end: 20080509

REACTIONS (5)
  - DIZZINESS [None]
  - FEELING ABNORMAL [None]
  - MENTAL IMPAIRMENT [None]
  - PARANOIA [None]
  - VISION BLURRED [None]
